FAERS Safety Report 11944575 (Version 1)
Quarter: 2016Q1

REPORT INFORMATION
  Report Type: Spontaneous
  Country: JP (occurrence: JP)
  Receive Date: 20160125
  Receipt Date: 20160125
  Transmission Date: 20160526
  Serious: Yes (Hospitalization, Other)
  Sender: FDA-Public Use
  Company Number: PHJP2015JP015716

PATIENT
  Age: 79 Year
  Sex: Male

DRUGS (4)
  1. SHAKUYAKUKANZOTO [Concomitant]
     Active Substance: HERBALS
     Indication: PRODUCT USED FOR UNKNOWN INDICATION
     Dosage: 2.5 G, TID
     Route: 048
     Dates: end: 20150829
  2. TEGRETOL [Suspect]
     Active Substance: CARBAMAZEPINE
     Indication: OCCIPITAL NEURALGIA
     Dosage: 100 MG, BID
     Route: 048
     Dates: start: 20150825, end: 20150829
  3. METHYCOBAL [Concomitant]
     Active Substance: METHYLCOBALAMIN
     Indication: PRODUCT USED FOR UNKNOWN INDICATION
     Dosage: 500 UG, TID
     Route: 048
     Dates: start: 20150825, end: 20150829
  4. UNISIA COMBINATION [Concomitant]
     Indication: PRODUCT USED FOR UNKNOWN INDICATION
     Dosage: 1 DF, QD
     Route: 048

REACTIONS (6)
  - Glucose urine present [Unknown]
  - Haemoglobin decreased [Unknown]
  - Inappropriate antidiuretic hormone secretion [Recovering/Resolving]
  - Systolic hypertension [Unknown]
  - Hyponatraemia [Unknown]
  - Product use issue [Unknown]

NARRATIVE: CASE EVENT DATE: 20150826
